FAERS Safety Report 4478212-0 (Version None)
Quarter: 2004Q4

REPORT INFORMATION
  Report Type: 
  Country: None (occurrence: None)
  Receive Date: 20041014
  Receipt Date: 20040920
  Transmission Date: 20050328
  Serious: Yes (Life-Threatening, Hospitalization)
  Sender: FDA-Public Use
  Company Number: 200410524BFR

PATIENT
  Age: 90 Year
  Sex: Female
  Weight: 54 kg

DRUGS (11)
  1. MOXIFLOXACIN HYDROCHLORIDE [Suspect]
     Indication: BRONCHOPNEUMOPATHY
     Dosage: 400 MG, TOTAL DAILY, ORAL
     Route: 048
     Dates: start: 20040412, end: 20040419
  2. PREVISCAN (FLUNIDIONE) [Suspect]
     Indication: PHLEBITIS
     Dates: start: 20030101
  3. AUGMENTIN '125' [Concomitant]
  4. HYPERIUM [Concomitant]
  5. KALEORID [Concomitant]
  6. OXEOL [Concomitant]
  7. TRINITRINE [Concomitant]
  8. FUROSEMIDE [Concomitant]
  9. TIORFAN [Concomitant]
  10. ULTRA-LEVURE [Concomitant]
  11. DOLIPRANE [Concomitant]

REACTIONS (2)
  - HAEMATEMESIS [None]
  - INTERNATIONAL NORMALISED RATIO INCREASED [None]
